FAERS Safety Report 7909270-6 (Version None)
Quarter: 2011Q4

REPORT INFORMATION
  Report Type: 
  Country: None (occurrence: None)
  Receive Date: 20111111
  Receipt Date: 20111104
  Transmission Date: 20120403
  Serious: Yes (Hospitalization)
  Sender: FDA-Public Use
  Company Number: JP-EISAI INC-E7389-01671-SPO-JP

PATIENT
  Age: 67 Year
  Sex: Female

DRUGS (1)
  1. HALAVEN [Suspect]
     Indication: BREAST CANCER RECURRENT
     Route: 041
     Dates: start: 20111007

REACTIONS (5)
  - NEUTROPENIA [None]
  - SENSATION OF HEAVINESS [None]
  - STOMATITIS [None]
  - NEUROPATHY PERIPHERAL [None]
  - PLEURAL EFFUSION [None]
